FAERS Safety Report 7505292-8 (Version None)
Quarter: 2011Q2

REPORT INFORMATION
  Report Type: 
  Country: None (occurrence: None)
  Receive Date: 20110526
  Receipt Date: 20110408
  Transmission Date: 20111010
  Serious: Yes (Death, Hospitalization, Other)
  Sender: FDA-Public Use
  Company Number: DE-BAYER-201012177GPV

PATIENT
  Age: 73 Year
  Sex: Male
  Weight: 66 kg

DRUGS (12)
  1. METFORMIN HCL [Concomitant]
     Indication: DIABETES MELLITUS
     Dosage: 1700 MG (DAILY DOSE), , ORAL
     Route: 048
     Dates: start: 20090101
  2. LEVOTHYROXINE SODIUM [Concomitant]
     Indication: HYPOTHYROIDISM
     Dosage: 75 ?G (DAILY DOSE), , ORAL
     Route: 048
     Dates: start: 20090101
  3. SIMVASTATIN [Concomitant]
     Indication: HYPERCHOLESTEROLAEMIA
     Dosage: 20 MG, QD
     Route: 048
     Dates: start: 20090101
  4. DOCITON [Concomitant]
     Indication: GASTRIC DISORDER
     Dosage: 5 MG (DAILY DOSE), , ORAL
     Route: 048
     Dates: start: 20090101
  5. ALDACTONE [POTASSIUM CANRENOATE] [Concomitant]
     Dosage: 100 MG, UNK
  6. JANUVIA [Concomitant]
     Indication: TYPE 2 DIABETES MELLITUS
     Dosage: 100 MG (DAILY DOSE), ,
     Dates: start: 20090101
  7. LASIX [Concomitant]
  8. SORAFENIB [Suspect]
     Indication: HEPATIC NEOPLASM MALIGNANT
     Route: 048
     Dates: start: 20100112, end: 20100115
  9. OLMESARTAN MEDOXOMIL [Concomitant]
     Indication: HYPERTENSION
     Dosage: 20 MG (DAILY DOSE), , ORAL
     Route: 048
     Dates: start: 20090101
  10. ERLOTINIB HYDROCHLORIDE [Suspect]
     Indication: HEPATIC NEOPLASM MALIGNANT
     Route: 048
     Dates: start: 20100112, end: 20100115
  11. DOCITON [Concomitant]
     Indication: HYPERTENSION
  12. ALLOPURINOL [Concomitant]
     Indication: HYPERURICAEMIA
     Dosage: 150 MG (DAILY DOSE), , ORAL
     Route: 048

REACTIONS (5)
  - GENERAL PHYSICAL HEALTH DETERIORATION [None]
  - RENAL FAILURE [None]
  - OESOPHAGEAL VARICES HAEMORRHAGE [None]
  - HEPATIC ENCEPHALOPATHY [None]
  - SYNCOPE [None]
